FAERS Safety Report 8805363 (Version 1)
Quarter: 2012Q4

REPORT INFORMATION
  Report Type: 
  Country: DE (occurrence: DE)
  Receive Date: 20120924
  Receipt Date: 20120924
  Transmission Date: 20130627
  Serious: Yes (Death, Other)
  Sender: FDA-Public Use
  Company Number: PHHY2012DE082049

PATIENT
  Age: 37 Year
  Sex: Male

DRUGS (8)
  1. TACROLIMUS [Suspect]
     Indication: LIVER TRANSPLANT
     Dosage: 2 mg, per day
  2. TACROLIMUS [Suspect]
     Dosage: 1 mg, per day
  3. CYCLOPHOSPHAMIDE [Suspect]
     Indication: BURKITT^S LYMPHOMA STAGE IV
     Dosage: 200 mg/m2, from day 1-5
  4. METHOTREXATE [Suspect]
     Indication: BURKITT^S LYMPHOMA STAGE IV
     Route: 037
  5. CYTARABINE [Suspect]
     Indication: BURKITT^S LYMPHOMA STAGE IV
     Route: 037
  6. RITUXIMAB [Suspect]
     Indication: BURKITT^S LYMPHOMA STAGE IV
  7. IBRITUMOMAB TIUXETAN [Suspect]
     Indication: BURKITT^S LYMPHOMA STAGE IV
  8. UNSPECIFIED INGREDIENT [Suspect]
     Indication: BURKITT^S LYMPHOMA STAGE IV

REACTIONS (5)
  - Haemorrhage [Fatal]
  - Burkitt^s lymphoma stage IV [Unknown]
  - VIth nerve paralysis [Unknown]
  - Epstein-Barr virus infection [Unknown]
  - Burkitt^s lymphoma recurrent [Unknown]
